FAERS Safety Report 6844773-7 (Version None)
Quarter: 2010Q3

REPORT INFORMATION
  Report Type: 
  Country: None (occurrence: None)
  Receive Date: 20100715
  Receipt Date: 20100714
  Transmission Date: 20110219
  Serious: Yes (Hospitalization)
  Sender: FDA-Public Use
  Company Number: GXKR2009DE05284

PATIENT
  Age: 66 Year
  Sex: Female
  Weight: 69 kg

DRUGS (3)
  1. PREDNISOLONE (NGX) [Suspect]
     Indication: POLYARTHRITIS
     Dosage: 10 MG, QD
     Route: 048
     Dates: start: 20000101
  2. INDOMETHACIN SODIUM [Concomitant]
     Route: 048
  3. CHLORTHALIDONE [Concomitant]
     Route: 048

REACTIONS (2)
  - HYPERGLYCAEMIA [None]
  - HYPOKALAEMIA [None]
